FAERS Safety Report 15006360 (Version 1)
Quarter: 2018Q2

REPORT INFORMATION
  Report Type: Spontaneous
  Country: DE (occurrence: DE)
  Receive Date: 20180613
  Receipt Date: 20180613
  Transmission Date: 20180711
  Serious: Yes (Hospitalization, Disabling)
  Sender: FDA-Public Use
  Company Number: DE-TEVA-2018-DE-906098

PATIENT
  Age: 44 Year
  Sex: Female

DRUGS (6)
  1. OXAZEPAM. [Suspect]
     Active Substance: OXAZEPAM
     Dosage: 10 MILLIGRAM DAILY; QD
     Route: 065
  2. CLOZAPINE. [Suspect]
     Active Substance: CLOZAPINE
     Dosage: UNK
     Route: 065
  3. MELNEURIN 25 MG [Suspect]
     Active Substance: MELPERONE HYDROCHLORIDE
     Dosage: UNK
  4. CONCOR 2.5 MG [Concomitant]
     Dosage: UNK
  5. PANTOPRAZOLE 40MG [Concomitant]
     Active Substance: PANTOPRAZOLE SODIUM
     Dosage: 40 MILLIGRAM DAILY; UNK
  6. NEUREXAN [Concomitant]
     Active Substance: HOMEOPATHICS
     Indication: RESTLESSNESS
     Dosage: UNK

REACTIONS (4)
  - Paradoxical drug reaction [Unknown]
  - Pneumonitis [Recovered/Resolved]
  - Respiratory depression [Unknown]
  - Dysstasia [Unknown]
